FAERS Safety Report 8409677-7 (Version None)
Quarter: 2012Q2

REPORT INFORMATION
  Report Type: 
  Country: None (occurrence: None)
  Receive Date: 20120605
  Receipt Date: 20120601
  Transmission Date: 20120825
  Serious: Yes (Other)
  Sender: FDA-Public Use
  Company Number: ZA-BAYER-2012-054868

PATIENT
  Age: 42 Year
  Sex: Female

DRUGS (1)
  1. MIRENA [Suspect]
     Indication: CONTRACEPTION
     Dosage: 20 MCG/24HR, CONT
     Route: 015
     Dates: start: 20080606

REACTIONS (7)
  - DEVICE BREAKAGE [None]
  - ALOPECIA [None]
  - ACNE [None]
  - FATIGUE [None]
  - DEVICE DISLOCATION [None]
  - MENORRHAGIA [None]
  - DYSMENORRHOEA [None]
